FAERS Safety Report 19888868 (Version 1)
Quarter: 2021Q3

REPORT INFORMATION
  Report Type: Spontaneous
  Country: BR (occurrence: BR)
  Receive Date: 20210928
  Receipt Date: 20210928
  Transmission Date: 20211014
  Serious: Yes (Other)
  Sender: FDA-Public Use
  Company Number: NVSC2021BR218320

PATIENT
  Sex: Female

DRUGS (2)
  1. ENTRESTO [Suspect]
     Active Substance: SACUBITRIL\VALSARTAN
     Indication: CARDIAC FAILURE
     Dosage: 1 DF
     Route: 065
  2. ENTRESTO [Suspect]
     Active Substance: SACUBITRIL\VALSARTAN
     Dosage: 1 DF
     Route: 065

REACTIONS (7)
  - Product physical issue [Unknown]
  - Product appearance confusion [Unknown]
  - Hypertension [Not Recovered/Not Resolved]
  - Product colour issue [Unknown]
  - Hypoxia [Unknown]
  - Malaise [Unknown]
  - Fatigue [Not Recovered/Not Resolved]
